FAERS Safety Report 24632789 (Version 1)
Quarter: 2024Q4

REPORT INFORMATION
  Report Type: Spontaneous
  Country: US (occurrence: US)
  Receive Date: 20241118
  Receipt Date: 20241118
  Transmission Date: 20250114
  Serious: No
  Sender: PERRIGO
  Company Number: US-PERRIGO-24US006055

PATIENT
  Age: 27 Year
  Sex: Female
  Weight: 117.91 kg

DRUGS (4)
  1. OPILL [Suspect]
     Active Substance: NORGESTREL
     Indication: Contraception
     Dosage: 0.075 MG, QD
     Route: 048
     Dates: start: 20240526, end: 20240618
  2. MINERALS\VITAMINS [Concomitant]
     Active Substance: MINERALS\VITAMINS
     Indication: Vitamin supplementation
     Dosage: UNKNOWN, UNKNOWN
     Route: 065
     Dates: start: 2023
  3. TUMS [Concomitant]
     Active Substance: CALCIUM CARBONATE
     Indication: Gastrointestinal disorder
     Dosage: UNKNOWN, PRN
     Route: 065
  4. TYLENOL [Concomitant]
     Active Substance: ACETAMINOPHEN
     Indication: Pain
     Dosage: UNKNOWN, PRN
     Route: 065

REACTIONS (8)
  - Pruritus [Recovering/Resolving]
  - Skin burning sensation [Recovering/Resolving]
  - Skin exfoliation [Recovering/Resolving]
  - Polymenorrhoea [Recovering/Resolving]
  - Intermenstrual bleeding [Recovered/Resolved]
  - Heavy menstrual bleeding [Not Recovered/Not Resolved]
  - Urticaria [Recovering/Resolving]
  - Erythema [Recovering/Resolving]

NARRATIVE: CASE EVENT DATE: 20240531
